FAERS Safety Report 6810623-8 (Version None)
Quarter: 2010Q2

REPORT INFORMATION
  Report Type: 
  Country: None (occurrence: None)
  Receive Date: 20100630
  Receipt Date: 20100618
  Transmission Date: 20101027
  Serious: Yes (Other)
  Sender: FDA-Public Use
  Company Number: PHHY2010GR40041

PATIENT
  Age: 53 Year
  Sex: Male

DRUGS (1)
  1. EXTAVIA [Suspect]
     Dosage: UNK
     Dates: start: 20091115

REACTIONS (4)
  - ANXIETY [None]
  - DRY MOUTH [None]
  - RESTLESSNESS [None]
  - TENSION [None]
